FAERS Safety Report 11228310 (Version 2)
Quarter: 2015Q3

REPORT INFORMATION
  Report Type: Report from Study
  Country: RO (occurrence: RO)
  Receive Date: 20150630
  Receipt Date: 20150708
  Transmission Date: 20151125
  Serious: Yes (Disabling)
  Sender: FDA-Public Use
  Company Number: RO-B.I. PHARMACEUTICALS,INC./RIDGEFIELD-2015-BI-33796BI

PATIENT
  Sex: Male
  Weight: 67 kg

DRUGS (1)
  1. PRADAXA [Suspect]
     Active Substance: DABIGATRAN ETEXILATE MESYLATE
     Indication: ATRIAL FIBRILLATION
     Dosage: DAILY DOSE: 110MG?2/ZI
     Route: 048
     Dates: start: 20150312

REACTIONS (1)
  - Cerebrovascular accident [Recovered/Resolved with Sequelae]
